FAERS Safety Report 10460485 (Version 1)
Quarter: 2014Q3

REPORT INFORMATION
  Report Type: Spontaneous
  Country: US (occurrence: US)
  Receive Date: 20140918
  Receipt Date: 20140918
  Transmission Date: 20150326
  Serious: No
  Sender: FDA-Public Use
  Company Number: US-US-EMD SERONO, INC.-7320627

PATIENT
  Age: 41 Year
  Sex: Female
  Weight: 83 kg

DRUGS (3)
  1. PAROXETIN                          /00830801/ [Concomitant]
     Indication: PRODUCT USED FOR UNKNOWN INDICATION
     Dosage: 1.5 TABLETS
     Route: 048
  2. REBIF [Suspect]
     Active Substance: INTERFERON BETA-1A
     Indication: MULTIPLE SCLEROSIS
     Dates: start: 200906
  3. GABAPENTIN. [Concomitant]
     Active Substance: GABAPENTIN
     Indication: PRODUCT USED FOR UNKNOWN INDICATION
     Route: 048

REACTIONS (6)
  - Vitamin D deficiency [Unknown]
  - Faecal incontinence [Unknown]
  - Vitamin B12 deficiency [Unknown]
  - Hepatic steatosis [Unknown]
  - Abnormal weight gain [Unknown]
  - Major depression [Unknown]

NARRATIVE: CASE EVENT DATE: 20091203
